FAERS Safety Report 24677225 (Version 1)
Quarter: 2024Q4

REPORT INFORMATION
  Report Type: Spontaneous
  Country: CN (occurrence: CN)
  Receive Date: 20241129
  Receipt Date: 20241129
  Transmission Date: 20250114
  Serious: Yes (Other)
  Sender: BEIGENE
  Company Number: CN-BEIGENE-BGN-2024-018928

PATIENT

DRUGS (3)
  1. TISLELIZUMAB [Suspect]
     Active Substance: TISLELIZUMAB
     Indication: Oesophageal carcinoma
     Dosage: 200 MILLIGRAM, Q3WK
     Route: 041
     Dates: start: 20241120
  2. NEDAPLATIN [Concomitant]
     Active Substance: NEDAPLATIN
     Indication: Oesophageal carcinoma
     Dosage: 120 MILLIGRAM, Q3WK
     Route: 041
     Dates: start: 20241119
  3. PACLITAXEL [Concomitant]
     Active Substance: PACLITAXEL
     Indication: Oesophageal carcinoma
     Dosage: 400 MILLIGRAM, Q3WK
     Route: 041
     Dates: start: 20241119

REACTIONS (2)
  - Hepatic failure [Unknown]
  - Hepatic function abnormal [Unknown]

NARRATIVE: CASE EVENT DATE: 20241121
